FAERS Safety Report 6856054-6 (Version None)
Quarter: 2010Q3

REPORT INFORMATION
  Report Type: 
  Country: None (occurrence: None)
  Receive Date: 20100715
  Receipt Date: 20100715
  Transmission Date: 20110219
  Serious: Yes (Other)
  Sender: FDA-Public Use
  Company Number: None

PATIENT
  Age: 72 Year
  Sex: Female
  Weight: 58.9676 kg

DRUGS (3)
  1. CATAPRESS DERMAL PATCH .3MG ALZA [Suspect]
     Indication: DEMENTIA
     Dosage: TWO .3MG PATCHES Q 7D CUTANEOUS
     Route: 003
     Dates: start: 20100101, end: 20100715
  2. CATAPRESS DERMAL PATCH .3MG ALZA [Suspect]
     Indication: HYPERTENSION
     Dosage: TWO .3MG PATCHES Q 7D CUTANEOUS
     Route: 003
     Dates: start: 20100101, end: 20100715
  3. CATAPRESS DERMAL PATCH .3MG ALZA [Suspect]
     Indication: TREATMENT NONCOMPLIANCE
     Dosage: TWO .3MG PATCHES Q 7D CUTANEOUS
     Route: 003
     Dates: start: 20100101, end: 20100715

REACTIONS (2)
  - APPLICATION SITE INDURATION [None]
  - APPLICATION SITE REACTION [None]
